FAERS Safety Report 15180197 (Version 1)
Quarter: 2018Q3

REPORT INFORMATION
  Report Type: Spontaneous
  Country: US (occurrence: US)
  Receive Date: 20180723
  Receipt Date: 20180723
  Transmission Date: 20181010
  Serious: No
  Sender: FDA-Public Use
  Company Number: US-JNJFOC-20180632161

PATIENT
  Sex: Male

DRUGS (1)
  1. TYLENOL WITH CODEINE [Suspect]
     Active Substance: ACETAMINOPHEN\CODEINE PHOSPHATE
     Indication: HEADACHE
     Dosage: 300?30 MG
     Route: 048

REACTIONS (3)
  - Drug ineffective [Unknown]
  - Urticaria [Unknown]
  - Skin lesion [Unknown]
